FAERS Safety Report 11289948 (Version 2)
Quarter: 2015Q3

REPORT INFORMATION
  Report Type: Report from Study
  Country: US (occurrence: US)
  Receive Date: 20150721
  Receipt Date: 20150730
  Transmission Date: 20151125
  Serious: No
  Sender: FDA-Public Use
  Company Number: US-ACTELION-A-US2015-121157

PATIENT
  Age: 86 Year
  Sex: Female

DRUGS (4)
  1. MACITENTAN [Suspect]
     Active Substance: MACITENTAN
     Indication: PULMONARY HYPERTENSION
     Dosage: 10 MG, QD
     Route: 048
     Dates: start: 20140128
  2. CARDIZEM [Concomitant]
     Active Substance: DILTIAZEM HYDROCHLORIDE
  3. NEXIUM [Concomitant]
     Active Substance: ESOMEPRAZOLE MAGNESIUM
  4. JANUMET [Concomitant]
     Active Substance: METFORMIN HYDROCHLORIDE\SITAGLIPTIN PHOSPHATE

REACTIONS (4)
  - Asthma [Recovered/Resolved]
  - Abdominal pain upper [Recovered/Resolved]
  - Urinary tract infection [Unknown]
  - Dyspnoea [Recovered/Resolved]

NARRATIVE: CASE EVENT DATE: 20150622
